FAERS Safety Report 9329524 (Version 2)
Quarter: 2013Q2

REPORT INFORMATION
  Report Type: Spontaneous
  Country: US (occurrence: None)
  Receive Date: 20130531
  Receipt Date: 20130626
  Transmission Date: 20140414
  Serious: Yes (Other)
  Sender: FDA-Public Use
  Company Number: CABO-13002741

PATIENT
  Age: 78 Year
  Sex: Male

DRUGS (13)
  1. COMETRIQ [Suspect]
     Indication: PROSTATE CANCER
     Route: 048
     Dates: start: 20130221, end: 20130314
  2. FLOMAX (TAMSULOSIN HYDROCHLORIDE) [Concomitant]
  3. ONDANSETRON (ONDANSETRON) [Concomitant]
  4. GLUCOSAMINE (GLUCOSAMINE) [Concomitant]
  5. OMEPRAZOLE (OMEPRAZOLE) [Concomitant]
  6. IRON (IRON) [Concomitant]
  7. FISH OIL (FISH OIL) [Concomitant]
  8. ASPIRIN (ACETYLSALICYLIC ACID) [Concomitant]
  9. XGEVA (DENOSUMAB) [Concomitant]
  10. LUPRON (LEUPRORELIN ACETATE) [Concomitant]
  11. CALCIUM + D3 (CALCIUM, COLECALCIFEROL) [Concomitant]
  12. HYDROCHLOROTHIAZIDE (HYDROCHLOROTHIAZIDE) [Concomitant]
  13. VASOTEC (ENALAPRIL MALEATE) [Concomitant]

REACTIONS (20)
  - Ageusia [None]
  - Dizziness [None]
  - Diarrhoea [None]
  - Nausea [None]
  - Dysgeusia [None]
  - Dehydration [None]
  - Weight decreased [None]
  - Fatigue [None]
  - Stomatitis [None]
  - Abdominal discomfort [None]
  - Glossodynia [None]
  - Oropharyngeal pain [None]
  - Asthenia [None]
  - Myalgia [None]
  - Malaise [None]
  - Syncope [None]
  - Pallor [None]
  - Hyperhidrosis [None]
  - Dysstasia [None]
  - Dysphonia [None]
